FAERS Safety Report 23405659 (Version 1)
Quarter: 2024Q1

REPORT INFORMATION
  Report Type: Spontaneous
  Country: US (occurrence: US)
  Receive Date: 20240116
  Receipt Date: 20240116
  Transmission Date: 20240410
  Serious: Yes (Hospitalization)
  Sender: FDA-Public Use
  Company Number: US-ELI_LILLY_AND_COMPANY-US202401003627

PATIENT
  Age: 65 Year
  Sex: Male

DRUGS (1)
  1. MOUNJARO [Suspect]
     Active Substance: TIRZEPATIDE
     Indication: Weight control
     Dosage: 2.5 MG, UNKNOWN
     Route: 058
     Dates: start: 202309

REACTIONS (6)
  - Acute kidney injury [Unknown]
  - Fall [Unknown]
  - Ankle fracture [Unknown]
  - Dehydration [Unknown]
  - Syncope [Unknown]
  - Off label use [Unknown]

NARRATIVE: CASE EVENT DATE: 20230901
